FAERS Safety Report 7555016-3 (Version None)
Quarter: 2011Q2

REPORT INFORMATION
  Report Type: 
  Country: None (occurrence: None)
  Receive Date: 20110617
  Receipt Date: 20110613
  Transmission Date: 20111010
  Serious: Yes (Other)
  Sender: FDA-Public Use
  Company Number: US-TEVA-283048USA

PATIENT
  Sex: Male

DRUGS (7)
  1. METHOTREXATE [Suspect]
     Dates: start: 20080909
  2. FOLIC ACID [Concomitant]
     Dates: start: 20080909
  3. ABATACEPT [Suspect]
     Indication: RHEUMATOID ARTHRITIS
     Dosage: 17.8571 MILLIGRAM;
     Route: 058
     Dates: start: 20090526, end: 20110209
  4. PRINZIDE [Concomitant]
     Dates: start: 20080909
  5. SILDENAFIL CITRATE [Concomitant]
     Dates: start: 20080930
  6. PROCHLORPERAZINE TAB [Concomitant]
     Dates: start: 20110315
  7. CORTISONE [Concomitant]
     Dates: start: 20110215

REACTIONS (1)
  - COLON CANCER METASTATIC [None]
